FAERS Safety Report 24566578 (Version 1)
Quarter: 2024Q4

REPORT INFORMATION
  Report Type: Spontaneous
  Country: US (occurrence: US)
  Receive Date: 20241030
  Receipt Date: 20241030
  Transmission Date: 20250114
  Serious: No
  Sender: ROCHE
  Company Number: US-ROCHE-10000119246

PATIENT
  Age: 15 Year
  Sex: Female
  Weight: 81.87 kg

DRUGS (11)
  1. XOLAIR [Suspect]
     Active Substance: OMALIZUMAB
     Indication: Chronic spontaneous urticaria
     Dosage: TOOK 2 150 MG SYRINGES.
     Route: 058
     Dates: start: 20171222, end: 201908
  2. XOLAIR [Suspect]
     Active Substance: OMALIZUMAB
     Dosage: TOOK 2 150 MG SYRINGES.
     Route: 058
     Dates: start: 20190813, end: 202408
  3. XOLAIR [Suspect]
     Active Substance: OMALIZUMAB
     Dosage: TOOK 300 MG / 2ML SYRINGE.
     Route: 058
     Dates: start: 20240830, end: 20240923
  4. XOLAIR [Suspect]
     Active Substance: OMALIZUMAB
     Dosage: TAKES 2 150 MG SYRINGES
     Route: 058
     Dates: start: 20241014
  5. ABILIFY [Concomitant]
     Active Substance: ARIPIPRAZOLE
     Indication: Depression
     Dosage: STARTED BEFORE 10 FEB-2020.
     Route: 048
  6. BENADRYL [Concomitant]
     Active Substance: DIPHENHYDRAMINE HYDROCHLORIDE
     Indication: Urticaria
     Dosage: TAKES AS NEEDED
     Route: 048
     Dates: start: 20171121
  7. EPIPEN [Concomitant]
     Active Substance: EPINEPHRINE
     Indication: Anaphylaxis prophylaxis
     Dosage: TAKES AS NEEDED.
     Route: 030
     Dates: start: 20171121
  8. LEVOCETIRIZINE [Concomitant]
     Active Substance: LEVOCETIRIZINE
     Indication: Chronic spontaneous urticaria
     Route: 048
     Dates: start: 20171121
  9. LORAZEPAM [Concomitant]
     Active Substance: LORAZEPAM
     Indication: Anxiety
     Route: 048
     Dates: start: 20230905
  10. PROZAC [Concomitant]
     Active Substance: FLUOXETINE HYDROCHLORIDE
     Indication: Depression
     Route: 048
     Dates: start: 20230630
  11. TRAZODONE [Concomitant]
     Active Substance: TRAZODONE HYDROCHLORIDE
     Indication: Insomnia
     Dosage: TAKES AS NEEDED.
     Route: 048
     Dates: start: 20180907

REACTIONS (6)
  - Drug ineffective [Unknown]
  - Dyspnoea [Recovering/Resolving]
  - Anxiety [Not Recovered/Not Resolved]
  - Insomnia [Not Recovered/Not Resolved]
  - Urticaria [Unknown]
  - Off label use [Unknown]

NARRATIVE: CASE EVENT DATE: 20180907
